FAERS Safety Report 6770434-9 (Version None)
Quarter: 2010Q2

REPORT INFORMATION
  Report Type: 
  Country: None (occurrence: None)
  Receive Date: 20100615
  Receipt Date: 20100607
  Transmission Date: 20101027
  Serious: Yes (Other)
  Sender: FDA-Public Use
  Company Number: CA-ASTRAZENECA-2010SE27254

PATIENT
  Age: 67 Year
  Sex: Male
  Weight: 112 kg

DRUGS (7)
  1. CRESTOR [Suspect]
     Route: 048
  2. ATACAND [Concomitant]
     Route: 048
  3. ASPIRIN [Concomitant]
     Route: 048
  4. CIALIS [Concomitant]
     Route: 048
  5. DIAMICRON MR [Concomitant]
     Route: 048
  6. HYCODAN [Concomitant]
     Route: 048
  7. IMOVANE [Concomitant]
     Route: 048

REACTIONS (1)
  - EPISTAXIS [None]
